FAERS Safety Report 9742781 (Version 2)
Quarter: 2014Q1

REPORT INFORMATION
  Report Type: Spontaneous
  Country: US (occurrence: US)
  Receive Date: 20131210
  Receipt Date: 20140107
  Transmission Date: 20141002
  Serious: Yes (Hospitalization)
  Sender: FDA-Public Use
  Company Number: US-BAYER-2013-148529

PATIENT
  Age: 42 Year
  Sex: Female

DRUGS (5)
  1. YASMIN [Suspect]
     Dosage: UNK
     Dates: start: 2002, end: 200408
  2. DIGOXIN [Concomitant]
     Dosage: UNK
     Dates: start: 20040825
  3. ADVIL [Concomitant]
     Indication: PAIN
     Dosage: UNK
     Dates: start: 20040825
  4. COLACE [Concomitant]
  5. MULTIVITAMIN [Concomitant]

REACTIONS (2)
  - Pulmonary embolism [None]
  - Deep vein thrombosis [None]
